FAERS Safety Report 18779811 (Version 3)
Quarter: 2021Q3

REPORT INFORMATION
  Report Type: Spontaneous
  Country: US (occurrence: US)
  Receive Date: 20210125
  Receipt Date: 20210825
  Transmission Date: 20211014
  Serious: Yes (Other)
  Sender: FDA-Public Use
  Company Number: US-SA-2021SA020728

PATIENT
  Age: 58 Year
  Sex: Female

DRUGS (8)
  1. CORTICOTROPIN [Suspect]
     Active Substance: CORTICOTROPIN
  2. BENEFIBER [Concomitant]
     Active Substance: STARCH, WHEAT
  3. AUBAGIO [Suspect]
     Active Substance: TERIFLUNOMIDE
     Indication: MULTIPLE SCLEROSIS
     Dosage: 7 MG, QD
     Route: 048
     Dates: start: 20181012
  4. AVONEX [Concomitant]
     Active Substance: INTERFERON BETA-1A
  5. FIBER [Concomitant]
     Active Substance: PSYLLIUM HUSK
     Dosage: UNK G
  6. MIRALAX [Concomitant]
     Active Substance: POLYETHYLENE GLYCOL 3350
  7. NON?ASPIRIN [Concomitant]
     Active Substance: ACETAMINOPHEN
  8. TYLENOL [Concomitant]
     Active Substance: ACETAMINOPHEN

REACTIONS (10)
  - Decreased interest [Unknown]
  - Psychiatric symptom [Unknown]
  - Muscular weakness [Unknown]
  - Cardiac flutter [Unknown]
  - Band sensation [Unknown]
  - Heart rate increased [Unknown]
  - Chest discomfort [Unknown]
  - Depressed mood [Unknown]
  - Insomnia [Unknown]
  - Pain in extremity [Unknown]

NARRATIVE: CASE EVENT DATE: 2019
